FAERS Safety Report 4628006-8 (Version None)
Quarter: 2005Q2

REPORT INFORMATION
  Report Type: 
  Country: None (occurrence: None)
  Receive Date: 20050406
  Receipt Date: 20050328
  Transmission Date: 20051028
  Serious: Yes (Hospitalization)
  Sender: FDA-Public Use
  Company Number: NZ-ROCHE-399867

PATIENT
  Age: 57 Year
  Sex: Female
  Weight: 54 kg

DRUGS (7)
  1. CAPECITABINE [Suspect]
     Indication: COLON CANCER METASTATIC
     Dosage: TWO WEEKS TREATMENT FOLLOWED BY ONE WEEK REST.
     Route: 048
     Dates: start: 20040518, end: 20040716
  2. BLINDED CELECOXIB [Suspect]
     Indication: COLON CANCER METASTATIC
     Route: 048
     Dates: start: 20040518, end: 20040716
  3. IRINOTECAN HCL [Suspect]
     Indication: COLON CANCER METASTATIC
     Route: 065
     Dates: start: 20040518, end: 20040702
  4. DOMPERIDONE [Concomitant]
     Dates: start: 20040518
  5. ATROPINE [Concomitant]
     Dates: start: 20040518, end: 20040702
  6. LOPERAMIDE HCL [Concomitant]
     Dates: start: 20040715, end: 20040715
  7. ONDANSETRON [Concomitant]
     Dates: start: 20040518

REACTIONS (3)
  - DIARRHOEA [None]
  - FEBRILE NEUTROPENIA [None]
  - INTESTINAL OBSTRUCTION [None]
